FAERS Safety Report 8171059-3 (Version None)
Quarter: 2012Q1

REPORT INFORMATION
  Report Type: 
  Country: None (occurrence: None)
  Receive Date: 20120228
  Receipt Date: 20120221
  Transmission Date: 20120608
  Serious: Yes (Hospitalization)
  Sender: FDA-Public Use
  Company Number: PHHY2012AT014754

PATIENT
  Age: 80 Year
  Sex: Female

DRUGS (2)
  1. MARCOUMAR [Suspect]
     Indication: ATRIAL FIBRILLATION
  2. ZOLEDRONOC ACID [Suspect]
     Indication: OSTEOPOROSIS
     Route: 042
     Dates: start: 20120123

REACTIONS (2)
  - ERYSIPELAS [None]
  - BONE PAIN [None]
